FAERS Safety Report 13318110 (Version 1)
Quarter: 2017Q1

REPORT INFORMATION
  Report Type: Spontaneous
  Country: US (occurrence: US)
  Receive Date: 20170310
  Receipt Date: 20170310
  Transmission Date: 20170428
  Serious: No
  Sender: FDA-Public Use
  Company Number: US-ASTRAZENECA-2017SE23446

PATIENT
  Sex: Male

DRUGS (2)
  1. ZOMIG [Suspect]
     Active Substance: ZOLMITRIPTAN
     Dosage: UNKNOWN
     Route: 048
  2. ZOMIG [Suspect]
     Active Substance: ZOLMITRIPTAN
     Dosage: GENERIC
     Route: 048

REACTIONS (2)
  - Drug abuser [Unknown]
  - Drug effect increased [Unknown]
